FAERS Safety Report 4642287-6 (Version None)
Quarter: 2005Q2

REPORT INFORMATION
  Report Type: 
  Country: None (occurrence: None)
  Receive Date: 20050420
  Receipt Date: 20050406
  Transmission Date: 20051028
  Serious: Yes (Hospitalization)
  Sender: FDA-Public Use
  Company Number: USA050392393

PATIENT
  Age: 55 Year
  Sex: Female

DRUGS (1)
  1. HUMATROPE [Suspect]
     Dosage: 0.3 MG/1 DAY
     Dates: start: 20040213

REACTIONS (6)
  - CONVULSION [None]
  - DEHYDRATION [None]
  - DRUG ADMINISTRATION ERROR [None]
  - HEADACHE [None]
  - PHARMACEUTICAL PRODUCT COMPLAINT [None]
  - WEIGHT DECREASED [None]
